FAERS Safety Report 6016299-4 (Version None)
Quarter: 2008Q4

REPORT INFORMATION
  Report Type: 
  Country: None (occurrence: None)
  Receive Date: 20081218
  Receipt Date: 20081202
  Transmission Date: 20090506
  Serious: Yes (Hospitalization)
  Sender: FDA-Public Use
  Company Number: KV200800833

PATIENT
  Age: 71 Year
  Sex: Female
  Weight: 51.7 kg

DRUGS (4)
  1. PROPAFENONE HCL [Suspect]
     Indication: ATRIAL FIBRILLATION
     Dosage: 225 MG, TID, ORAL
     Route: 048
     Dates: start: 20080301
  2. COUMADIN [Concomitant]
  3. SYNTHROID [Concomitant]
  4. PROTONIX /01263201/ (PANTOPRAZOLE) [Concomitant]

REACTIONS (3)
  - CARDIAC ARREST [None]
  - CHEST DISCOMFORT [None]
  - PRODUCT QUALITY ISSUE [None]
